FAERS Safety Report 8362476 (Version 2)
Quarter: 2015Q1

REPORT INFORMATION
  Report Type: Report from Study
  Country: US (occurrence: US)
  Receive Date: 20120130
  Receipt Date: 20150226
  Transmission Date: 20150721
  Serious: Yes (Death)
  Sender: FDA-Public Use
  Company Number: US-ROCHE-1034610

PATIENT
  Sex: Male

DRUGS (14)
  1. ARANESP [Concomitant]
     Active Substance: DARBEPOETIN ALFA
     Route: 065
  2. GEMZAR [Concomitant]
     Active Substance: GEMCITABINE HYDROCHLORIDE
     Route: 065
  3. GEMZAR [Concomitant]
     Active Substance: GEMCITABINE HYDROCHLORIDE
     Route: 065
  4. COUMADIN (UNITED STATES) [Concomitant]
  5. DECADRON [Concomitant]
     Active Substance: DEXAMETHASONE
     Indication: ARTHRITIS
     Route: 042
  6. AVASTIN [Suspect]
     Active Substance: BEVACIZUMAB
     Indication: PANCREATIC CARCINOMA
     Route: 042
     Dates: start: 20061213
  7. TAXOTERE [Concomitant]
     Active Substance: DOCETAXEL
     Route: 065
  8. KYTRIL [Concomitant]
     Active Substance: GRANISETRON HYDROCHLORIDE
     Route: 042
  9. FENTANYL TRANSDERMAL SYSTEM [Concomitant]
     Active Substance: FENTANYL
     Indication: PAIN
  10. INDOCIN [Concomitant]
     Active Substance: INDOMETHACIN\INDOMETHACIN SODIUM
     Indication: ARTHRITIS
  11. OXYCODONE [Concomitant]
     Active Substance: OXYCODONE
     Indication: PAIN
  12. ARANESP [Concomitant]
     Active Substance: DARBEPOETIN ALFA
     Route: 065
  13. TAXOTERE [Concomitant]
     Active Substance: DOCETAXEL
     Route: 065
  14. ARANESP [Concomitant]
     Active Substance: DARBEPOETIN ALFA
     Route: 065

REACTIONS (7)
  - Death [Fatal]
  - Off label use [Unknown]
  - Erythema [Unknown]
  - Back pain [Unknown]
  - Swelling [Unknown]
  - Abdominal pain [Unknown]
  - Abdominal pain upper [Unknown]
